FAERS Safety Report 16841131 (Version 3)
Quarter: 2021Q2

REPORT INFORMATION
  Report Type: Spontaneous
  Country: US (occurrence: US)
  Receive Date: 20190923
  Receipt Date: 20210408
  Transmission Date: 20210716
  Serious: No
  Sender: FDA-Public Use
  Company Number: US-SA-2019SA263186

PATIENT
  Age: 50 Year
  Sex: Female

DRUGS (1)
  1. FABRAZYME [Suspect]
     Active Substance: AGALSIDASE BETA
     Dosage: UNK, UNK
     Route: 065

REACTIONS (2)
  - Vertigo [Unknown]
  - Product storage error [Unknown]

NARRATIVE: CASE EVENT DATE: 2018
